FAERS Safety Report 16130653 (Version 1)
Quarter: 2019Q1

REPORT INFORMATION
  Report Type: Spontaneous
  Country: US (occurrence: US)
  Receive Date: 20190328
  Receipt Date: 20190328
  Transmission Date: 20190418
  Serious: Yes (Other)
  Sender: FDA-Public Use
  Company Number: US-SA-2019SA081807

PATIENT
  Age: 80 Year
  Sex: Female

DRUGS (2)
  1. SUDAFED [XYLOMETAZOLINE HYDROCHLORIDE] [Concomitant]
  2. ALLEGRA-D 24 HOUR [Suspect]
     Active Substance: FEXOFENADINE HYDROCHLORIDE\PSEUDOEPHEDRINE HYDROCHLORIDE
     Dosage: 2 DF, QD
     Route: 065

REACTIONS (6)
  - Vomiting [Unknown]
  - Cough [Unknown]
  - Oral pain [Unknown]
  - Insomnia [Unknown]
  - Drug ineffective [Unknown]
  - Drug dependence [Unknown]
